FAERS Safety Report 25121658 (Version 1)
Quarter: 2025Q1

REPORT INFORMATION
  Report Type: Spontaneous
  Country: CA (occurrence: CA)
  Receive Date: 20250326
  Receipt Date: 20250326
  Transmission Date: 20250409
  Serious: Yes (Other)
  Sender: ALKEM
  Company Number: CA-ALKEM LABORATORIES LIMITED-CA-ALKEM-2025-01282

PATIENT
  Sex: Female

DRUGS (4)
  1. COLCHICINE [Suspect]
     Active Substance: COLCHICINE
     Indication: Behcet^s syndrome
     Route: 065
  2. AZATHIOPRINE [Suspect]
     Active Substance: AZATHIOPRINE
     Indication: Behcet^s syndrome
     Route: 065
  3. LEVAMISOLE [Suspect]
     Active Substance: LEVAMISOLE
     Indication: Behcet^s syndrome
     Route: 065
  4. METHOTREXATE [Suspect]
     Active Substance: METHOTREXATE
     Indication: Behcet^s syndrome
     Route: 065

REACTIONS (2)
  - Exposure during pregnancy [Unknown]
  - Superficial vein thrombosis [Unknown]
